FAERS Safety Report 6050228-2 (Version None)
Quarter: 2009Q1

REPORT INFORMATION
  Report Type: 
  Country: None (occurrence: None)
  Receive Date: 20090122
  Receipt Date: 20090122
  Transmission Date: 20090719
  Serious: Yes (Life-Threatening, Hospitalization, Other)
  Sender: FDA-Public Use
  Company Number: None

PATIENT
  Age: 45 Year
  Sex: Male
  Weight: 58.9676 kg

DRUGS (3)
  1. CELEXA [Suspect]
     Indication: ANXIETY
     Dosage: 60 MG DAILY PO
     Route: 048
     Dates: start: 19990309, end: 20020615
  2. KLONOPIN [Concomitant]
  3. TRAZODONE HCL [Concomitant]

REACTIONS (69)
  - ABDOMINAL DISTENSION [None]
  - ABDOMINAL PAIN [None]
  - AGGRESSION [None]
  - ALLERGIC RESPIRATORY SYMPTOM [None]
  - ALOPECIA [None]
  - AMNESIA [None]
  - ANXIETY [None]
  - ATTENTION DEFICIT/HYPERACTIVITY DISORDER [None]
  - BALANCE DISORDER [None]
  - BLINDNESS [None]
  - BLINDNESS UNILATERAL [None]
  - CHRONIC FATIGUE SYNDROME [None]
  - CONDITION AGGRAVATED [None]
  - CONFUSIONAL STATE [None]
  - DEPRESSION [None]
  - DIARRHOEA [None]
  - DIZZINESS [None]
  - DYSARTHRIA [None]
  - DYSPNOEA [None]
  - DYSURIA [None]
  - EPILEPSY [None]
  - EXOPHTHALMOS [None]
  - EYE PAIN [None]
  - FACIAL PAIN [None]
  - FLUID RETENTION [None]
  - HAEMATOCHEZIA [None]
  - HEADACHE [None]
  - HEARING IMPAIRED [None]
  - HYPERSENSITIVITY [None]
  - HYPERTENSION [None]
  - HYPOAESTHESIA [None]
  - HYPOGLYCAEMIA [None]
  - INFECTION SUSCEPTIBILITY INCREASED [None]
  - INSOMNIA [None]
  - IRRITABILITY [None]
  - LACRIMAL DISORDER [None]
  - LIP DISORDER [None]
  - MENTAL DISORDER [None]
  - MIGRAINE [None]
  - MULTIPLE ALLERGIES [None]
  - NAUSEA [None]
  - NIGHT BLINDNESS [None]
  - ODYNOPHAGIA [None]
  - OEDEMA PERIPHERAL [None]
  - ORAL DISORDER [None]
  - OVERDOSE [None]
  - PALPITATIONS [None]
  - PARAESTHESIA [None]
  - PERSONALITY CHANGE [None]
  - PHOBIA [None]
  - PHOTOPSIA [None]
  - POLLAKIURIA [None]
  - PRURITUS [None]
  - PSYCHOMOTOR HYPERACTIVITY [None]
  - RESTLESS LEGS SYNDROME [None]
  - SKIN DISORDER [None]
  - SOMNOLENCE [None]
  - SUICIDAL IDEATION [None]
  - SUICIDE ATTEMPT [None]
  - TACHYCARDIA [None]
  - THIRST [None]
  - TINNITUS [None]
  - TREMOR [None]
  - TUNNEL VISION [None]
  - URTICARIA [None]
  - VISION BLURRED [None]
  - VISUAL ACUITY REDUCED [None]
  - VISUAL IMPAIRMENT [None]
  - WEIGHT DECREASED [None]
